FAERS Safety Report 21295999 (Version 2)
Quarter: 2022Q4

REPORT INFORMATION
  Report Type: Spontaneous
  Country: US (occurrence: US)
  Receive Date: 20220906
  Receipt Date: 20221226
  Transmission Date: 20230113
  Serious: No
  Sender: FDA-Public Use
  Company Number: US-AMGEN-USASP2022150347

PATIENT
  Age: 67 Year
  Sex: Male
  Weight: 94.3 kg

DRUGS (1)
  1. KYPROLIS [Suspect]
     Active Substance: CARFILZOMIB
     Indication: Product used for unknown indication
     Dosage: 117 MILLIGRAM, Q4WK (54 MG/M2, 60 MILLIGRAM X 2VIALS)
     Route: 040
     Dates: start: 201906

REACTIONS (1)
  - COVID-19 [Not Recovered/Not Resolved]

NARRATIVE: CASE EVENT DATE: 20220830
